FAERS Safety Report 18471100 (Version 1)
Quarter: 2020Q4

REPORT INFORMATION
  Report Type: Other
  Country: US (occurrence: US)
  Receive Date: 20201106
  Receipt Date: 20201106
  Transmission Date: 20210114
  Serious: Yes (Hospitalization)
  Sender: FDA-Public Use
  Company Number: US-ROCHE-2706468

PATIENT
  Age: 71 Year
  Sex: Female

DRUGS (4)
  1. OCREVUS [Suspect]
     Active Substance: OCRELIZUMAB
     Dosage: MAX 300ML/HR FOR DURATION OF 3.5HR OR LONGER
     Route: 042
  2. OCREVUS [Suspect]
     Active Substance: OCRELIZUMAB
     Route: 042
     Dates: start: 20180328, end: 20180328
  3. OCREVUS [Suspect]
     Active Substance: OCRELIZUMAB
     Indication: RELAPSING MULTIPLE SCLEROSIS
     Dosage: ONGOING: YES, DATE OF TREATMENT: 28/JAN/2018, 28/MAR/2018, 14/JAN/2019.
     Route: 042
     Dates: start: 20170906
  4. OCREVUS [Suspect]
     Active Substance: OCRELIZUMAB
     Dosage: 40 ML/HR MAY INCREASE BY 40ML/HR Q30 MIN AS TOLERAT
     Route: 042

REACTIONS (2)
  - Headache [Not Recovered/Not Resolved]
  - Hypertension [Recovered/Resolved]

NARRATIVE: CASE EVENT DATE: 20180329
